FAERS Safety Report 9619568 (Version 1)
Quarter: 2013Q4

REPORT INFORMATION
  Report Type: Report from Study
  Country: KR (occurrence: KR)
  Receive Date: 20131014
  Receipt Date: 20131014
  Transmission Date: 20140711
  Serious: Yes (Other)
  Sender: FDA-Public Use
  Company Number: KR-B.I. PHARMACEUTICALS,INC./RIDGEFIELD-2013-BI-32046GD

PATIENT
  Sex: 0

DRUGS (1)
  1. PRAMIPEXOLE [Suspect]
     Indication: PARKINSON^S DISEASE

REACTIONS (2)
  - Dopamine dysregulation syndrome [Unknown]
  - Drug abuse [Unknown]
